FAERS Safety Report 5647902-6 (Version None)
Quarter: 2008Q1

REPORT INFORMATION
  Report Type: 
  Country: None (occurrence: None)
  Receive Date: 20080303
  Receipt Date: 20080220
  Transmission Date: 20080703
  Serious: Yes (Other)
  Sender: FDA-Public Use
  Company Number: US-PFIZER INC-2008018196

PATIENT
  Sex: Female
  Weight: 81.2 kg

DRUGS (7)
  1. CHANTIX [Suspect]
     Indication: SMOKING CESSATION THERAPY
  2. METFORMIN HCL [Concomitant]
     Dosage: TEXT:TWICE DAILY
     Route: 048
  3. GLIPIZIDE [Concomitant]
     Dosage: TEXT:TWICE DAILY
     Route: 048
  4. ANTIHYPERTENSIVES [Concomitant]
  5. ASPIRIN [Concomitant]
  6. PREDNISONE TAB [Concomitant]
  7. ANTIDEPRESSANTS [Concomitant]

REACTIONS (3)
  - BLOOD GLUCOSE INCREASED [None]
  - HEADACHE [None]
  - MUSCULOSKELETAL STIFFNESS [None]
